FAERS Safety Report 11394718 (Version 1)
Quarter: 2015Q3

REPORT INFORMATION
  Report Type: Spontaneous
  Country: US (occurrence: US)
  Receive Date: 20150819
  Receipt Date: 20150819
  Transmission Date: 20151125
  Serious: No
  Sender: FDA-Public Use
  Company Number: US-TEVA-587087USA

PATIENT
  Sex: Female
  Weight: 83.99 kg

DRUGS (7)
  1. METHOTREXATE [Concomitant]
     Active Substance: METHOTREXATE
     Indication: RHEUMATOID ARTHRITIS
  2. ESTROGEN [Concomitant]
     Active Substance: ESTRONE\SUS SCROFA OVARY
     Indication: HYSTERECTOMY
  3. NUVIGIL [Suspect]
     Active Substance: ARMODAFINIL
     Dosage: 500 MILLIGRAM DAILY;
  4. PROVIGIL [Suspect]
     Active Substance: MODAFINIL
     Indication: NARCOLEPSY
  5. POTASSIUM [Concomitant]
     Active Substance: POTASSIUM
  6. PROVIGIL [Suspect]
     Active Substance: MODAFINIL
     Indication: HEAD INJURY
     Dates: start: 2005
  7. NUVIGIL [Suspect]
     Active Substance: ARMODAFINIL
     Indication: HEAD INJURY
     Dates: start: 2009

REACTIONS (5)
  - Adverse event [Unknown]
  - Incorrect dose administered [Unknown]
  - Product use issue [Unknown]
  - Drug ineffective [Unknown]
  - Drug ineffective for unapproved indication [Unknown]

NARRATIVE: CASE EVENT DATE: 2005
